FAERS Safety Report 8153644-8 (Version None)
Quarter: 2012Q1

REPORT INFORMATION
  Report Type: 
  Country: None (occurrence: None)
  Receive Date: 20120221
  Receipt Date: 20120206
  Transmission Date: 20120608
  Serious: Yes (Other)
  Sender: FDA-Public Use
  Company Number: IN-WATSON-2012-02351

PATIENT
  Age: 21 Year
  Sex: Male

DRUGS (3)
  1. TINIDAZOLE [Suspect]
     Indication: IRRITABLE BOWEL SYNDROME
  2. ORNIDAZOLE [Suspect]
     Indication: IRRITABLE BOWEL SYNDROME
  3. METRONIDAZOLE [Suspect]
     Indication: IRRITABLE BOWEL SYNDROME
     Dosage: UNK
     Route: 065

REACTIONS (5)
  - TOXIC ENCEPHALOPATHY [None]
  - NEUROPATHY PERIPHERAL [None]
  - SELF-MEDICATION [None]
  - GRAND MAL CONVULSION [None]
  - MEDICATION ERROR [None]
